FAERS Safety Report 4363742-2 (Version None)
Quarter: 2004Q2

REPORT INFORMATION
  Report Type: 
  Country: None (occurrence: None)
  Receive Date: 20040517
  Receipt Date: 20040415
  Transmission Date: 20050107
  Serious: No
  Sender: FDA-Public Use
  Company Number: S04-USA-02133-01

PATIENT
  Age: 88 Year
  Sex: Male

DRUGS (6)
  1. NAMENDA [Suspect]
     Indication: AMNESIA
     Dosage: 5 MG QD PO
     Route: 048
     Dates: start: 20040405, end: 20040411
  2. NAMENDA [Suspect]
     Indication: AMNESIA
     Dosage: 10 MG QD PO
     Route: 048
     Dates: start: 20040412
  3. ARICEPT [Concomitant]
  4. CHOLESTEROL MEDICATION (NOS) [Concomitant]
  5. COREG [Concomitant]
  6. GLUCOPHAGE [Concomitant]

REACTIONS (4)
  - ANXIETY [None]
  - CONSTIPATION [None]
  - INSOMNIA [None]
  - NERVOUSNESS [None]
